FAERS Safety Report 18476630 (Version 1)
Quarter: 2020Q4

REPORT INFORMATION
  Report Type: Spontaneous
  Country: NG (occurrence: NG)
  Receive Date: 20201107
  Receipt Date: 20201107
  Transmission Date: 20210114
  Serious: Yes (Death, Life-Threatening, Other)
  Sender: FDA-Public Use
  Company Number: NG-SA-2020SA297848

PATIENT

DRUGS (5)
  1. FERROUS SULPHATE [FERROUS SULFATE] [Concomitant]
     Active Substance: FERROUS SULFATE
     Dosage: UNK
     Route: 048
     Dates: start: 20201008, end: 20201008
  2. AUGUMENTIN ES [Concomitant]
     Dosage: UNK
     Route: 048
     Dates: start: 20201008, end: 20201015
  3. LANTUS [Suspect]
     Active Substance: INSULIN GLARGINE
     Indication: TYPE 2 DIABETES MELLITUS
     Dosage: 24 IU, DAILY
     Route: 058
     Dates: start: 20201008
  4. AMLODIPINE [Concomitant]
     Active Substance: AMLODIPINE BESYLATE
     Dosage: UNK
     Route: 048
     Dates: start: 20201008, end: 20201008
  5. AZITHROMYCIN ANHYDROUS. [Concomitant]
     Active Substance: AZITHROMYCIN ANHYDROUS
     Dosage: UNK
     Route: 048
     Dates: start: 20201008, end: 20201015

REACTIONS (4)
  - Haematocrit decreased [Not Recovered/Not Resolved]
  - Syncope [Unknown]
  - Diabetic nephropathy [Fatal]
  - Cardiac failure [Fatal]

NARRATIVE: CASE EVENT DATE: 20201017
